FAERS Safety Report 7138661-9 (Version None)
Quarter: 2010Q4

REPORT INFORMATION
  Report Type: 
  Country: None (occurrence: None)
  Receive Date: 20101122
  Receipt Date: 20101112
  Transmission Date: 20110411
  Serious: Yes (Other)
  Sender: FDA-Public Use
  Company Number: ZYD-10-AE-280

PATIENT
  Age: 58 Year
  Sex: Male

DRUGS (1)
  1. RIBAVIRIN [Suspect]

REACTIONS (12)
  - ANAEMIA [None]
  - BRONCHITIS [None]
  - CONSTIPATION [None]
  - DECREASED APPETITE [None]
  - DYSPNOEA [None]
  - EXOSTOSIS [None]
  - HAEMORRHAGE [None]
  - INFECTION [None]
  - NERVE INJURY [None]
  - OEDEMA PERIPHERAL [None]
  - STENT PLACEMENT [None]
  - WHITE BLOOD CELL COUNT DECREASED [None]
